FAERS Safety Report 21593131 (Version 1)
Quarter: 2022Q4

REPORT INFORMATION
  Report Type: Spontaneous
  Country: US (occurrence: US)
  Receive Date: 20221114
  Receipt Date: 20221114
  Transmission Date: 20230113
  Serious: Yes (Hospitalization)
  Sender: FDA-Public Use
  Company Number: US-STRIDES ARCOLAB LIMITED-2022SP015228

PATIENT
  Age: 75 Year
  Sex: Male

DRUGS (10)
  1. OLANZAPINE [Suspect]
     Active Substance: OLANZAPINE
     Indication: Psychotic disorder
     Dosage: 2.5 MILLIGRAM (REPEATED DOSES)
     Route: 065
  2. OLANZAPINE [Suspect]
     Active Substance: OLANZAPINE
     Dosage: UNK; (CUMULATIVE DOSE OF 25MG) (ON DAY 3)
     Route: 065
  3. CLOZAPINE [Suspect]
     Active Substance: CLOZAPINE
     Indication: Psychotic disorder
     Dosage: 12.5 MILLIGRAM , DAILY (GRADUAL UP-TITRATION TO 50 MG DAILY)
     Route: 065
  4. CLOZAPINE [Suspect]
     Active Substance: CLOZAPINE
     Dosage: 50 MILLIGRAM, DAILY (GRADUAL UP-TITRATION TO 50 MG DAILY)
     Route: 065
  5. CLOZAPINE [Suspect]
     Active Substance: CLOZAPINE
     Dosage: 50 MILLIGRAM, BID
     Route: 065
  6. PIMAVANSERIN [Concomitant]
     Active Substance: PIMAVANSERIN
     Indication: Psychotic disorder
     Dosage: UNK
     Route: 065
  7. PIMAVANSERIN [Concomitant]
     Active Substance: PIMAVANSERIN
     Indication: Dementia with Lewy bodies
     Dosage: 34 MILLIGRAM, DAILY
     Route: 065
  8. DONEPEZIL [Concomitant]
     Active Substance: DONEPEZIL
     Indication: Dementia with Lewy bodies
     Dosage: 10 MILLIGRAM, PER DAY
     Route: 065
  9. VALPROIC ACID [Concomitant]
     Active Substance: VALPROIC ACID
     Indication: Product used for unknown indication
     Dosage: UNK
     Route: 065
  10. LORAZEPAM [Concomitant]
     Active Substance: LORAZEPAM
     Indication: Agitation
     Dosage: UNK, PRN
     Route: 065

REACTIONS (3)
  - Motor dysfunction [Recovered/Resolved]
  - Neuropsychiatric symptoms [Recovered/Resolved]
  - Disease progression [Recovered/Resolved]
